FAERS Safety Report 18886044 (Version 2)
Quarter: 2021Q1

REPORT INFORMATION
  Report Type: Spontaneous
  Country: JP (occurrence: JP)
  Receive Date: 20210212
  Receipt Date: 20210312
  Transmission Date: 20210420
  Serious: Yes (Other)
  Sender: FDA-Public Use
  Company Number: JP-PFIZER INC-2021132502

PATIENT
  Age: 86 Year
  Sex: Female

DRUGS (2)
  1. PACLITAXEL. [Suspect]
     Active Substance: PACLITAXEL
     Indication: BREAST CANCER METASTATIC
     Dosage: 80 MG/M2, CYCLIC (ON DAY 1 AND 15)
     Dates: start: 2019, end: 202003
  2. BEVACIZUMAB. [Suspect]
     Active Substance: BEVACIZUMAB
     Indication: BREAST CANCER METASTATIC
     Dosage: 10 MG/KG, CYCLIC (ON DAY 1 AND 15)
     Dates: start: 2019, end: 202002

REACTIONS (4)
  - Off label use [Unknown]
  - Epistaxis [Unknown]
  - Neuropathy peripheral [Unknown]
  - Hypertension [Unknown]
